FAERS Safety Report 13166994 (Version 2)
Quarter: 2017Q3

REPORT INFORMATION
  Report Type: Spontaneous
  Country: US (occurrence: US)
  Receive Date: 20170131
  Receipt Date: 20170801
  Transmission Date: 20171127
  Serious: Yes (Death, Hospitalization, Other)
  Sender: FDA-Public Use
  Company Number: US-009507513-1701USA013579

PATIENT
  Sex: Male
  Weight: 81.63 kg

DRUGS (3)
  1. BYETTA [Suspect]
     Active Substance: EXENATIDE
     Indication: TYPE 2 DIABETES MELLITUS
     Dosage: 10MCG-0.25 ML
     Route: 065
     Dates: start: 200709, end: 200808
  2. JANUVIA [Suspect]
     Active Substance: SITAGLIPTIN PHOSPHATE
     Indication: TYPE 2 DIABETES MELLITUS
     Dosage: 100 MG, QD
     Route: 048
     Dates: start: 20081002, end: 201205
  3. BYETTA [Suspect]
     Active Substance: EXENATIDE
     Dosage: 10MCG-0.25 ML
     Route: 065
     Dates: start: 201203, end: 201405

REACTIONS (22)
  - Adenocarcinoma pancreas [Unknown]
  - Cholelithiasis [Unknown]
  - Metastases to lung [Unknown]
  - Death [Fatal]
  - Bladder cancer [Unknown]
  - Osteoarthritis [Unknown]
  - Nephrolithiasis [Unknown]
  - Hydronephrosis [Unknown]
  - Pulmonary mass [Unknown]
  - Renal failure [Unknown]
  - Myocardial infarction [Unknown]
  - Urinary tract infection [Unknown]
  - Headache [Unknown]
  - Hypoglycaemia [Unknown]
  - Renal cyst [Unknown]
  - Metastases to bone [Unknown]
  - Anaemia [Unknown]
  - Hepatic steatosis [Unknown]
  - Cholangitis [Unknown]
  - Hyperlipidaemia [Unknown]
  - Mastication disorder [Unknown]
  - Arteriosclerosis coronary artery [Unknown]

NARRATIVE: CASE EVENT DATE: 2008
